FAERS Safety Report 14582209 (Version 1)
Quarter: 2018Q1

REPORT INFORMATION
  Report Type: Spontaneous
  Country: US (occurrence: US)
  Receive Date: 20180227
  Receipt Date: 20180227
  Transmission Date: 20180509
  Serious: Yes (Hospitalization)
  Sender: FDA-Public Use
  Company Number: None

PATIENT
  Age: 54 Year
  Sex: Male
  Weight: 81.9 kg

DRUGS (12)
  1. DOXEPIN [Concomitant]
     Active Substance: DOXEPIN
  2. VENLAFAXIN [Concomitant]
     Active Substance: VENLAFAXINE HYDROCHLORIDE
  3. HARVONI [Suspect]
     Active Substance: LEDIPASVIR\SOFOSBUVIR
     Indication: HEPATITIS C VIRUS TEST
     Dosage: 90-400 QD ORAL
     Route: 048
     Dates: start: 20170606, end: 20171121
  4. RIFAXIMIN. [Concomitant]
     Active Substance: RIFAXIMIN
  5. LASIX [Concomitant]
     Active Substance: FUROSEMIDE
  6. OXYCODONE [Concomitant]
     Active Substance: OXYCODONE
  7. PSYLLIUM [Concomitant]
     Active Substance: PLANTAGO SEED
  8. SPIRONOLAC [Concomitant]
  9. CIPROFLOXA [Concomitant]
  10. OLANZAPINE. [Concomitant]
     Active Substance: OLANZAPINE
  11. LACTULOSE. [Concomitant]
     Active Substance: LACTULOSE
  12. OMEPRAZOLE. [Concomitant]
     Active Substance: OMEPRAZOLE

REACTIONS (6)
  - Staphylococcus test positive [None]
  - Hepatic vein stenosis [None]
  - Skin lesion [None]
  - Pleural effusion [None]
  - Hepatic encephalopathy [None]
  - Dyspnoea [None]

NARRATIVE: CASE EVENT DATE: 20170612
